FAERS Safety Report 14581793 (Version 1)
Quarter: 2018Q1

REPORT INFORMATION
  Report Type: Spontaneous
  Country: IT (occurrence: US)
  Receive Date: 20180228
  Receipt Date: 20180228
  Transmission Date: 20180509
  Serious: Yes (Other)
  Sender: FDA-Public Use
  Company Number: IT-MYLANLABS-2017M1083435

PATIENT

DRUGS (1)
  1. TACROLIMUS. [Suspect]
     Active Substance: TACROLIMUS
     Indication: BONE MARROW TRANSPLANT
     Dosage: UNK
     Route: 065

REACTIONS (4)
  - Thrombotic microangiopathy [Unknown]
  - Renal impairment [Unknown]
  - Product use in unapproved indication [Unknown]
  - Toxicity to various agents [Unknown]
